FAERS Safety Report 25154075 (Version 1)
Quarter: 2025Q2

REPORT INFORMATION
  Report Type: Other
  Country: FR (occurrence: FR)
  Receive Date: 20250403
  Receipt Date: 20250403
  Transmission Date: 20250717
  Serious: Yes (Other)
  Sender: ZYDUS PHARM
  Company Number: None

PATIENT

DRUGS (9)
  1. BISOPROLOL [Suspect]
     Active Substance: BISOPROLOL
     Indication: Cardiac disorder
     Route: 064
     Dates: end: 20240104
  2. ELIQUIS [Suspect]
     Active Substance: APIXABAN
     Indication: Cardiac disorder
     Route: 064
     Dates: end: 20240104
  3. FUROSEMIDE [Suspect]
     Active Substance: FUROSEMIDE
     Indication: Cardiac disorder
     Route: 064
     Dates: end: 20240104
  4. ALDACTONE [Suspect]
     Active Substance: SPIRONOLACTONE
     Indication: Cardiac disorder
     Route: 064
     Dates: end: 20240104
  5. DAPAGLIFLOZIN [Suspect]
     Active Substance: DAPAGLIFLOZIN
     Indication: Cardiac disorder
     Route: 064
     Dates: end: 20240104
  6. ENTRESTO [Suspect]
     Active Substance: SACUBITRIL\VALSARTAN
     Indication: Cardiac disorder
     Route: 064
     Dates: end: 20240104
  7. LOVENOX [Suspect]
     Active Substance: ENOXAPARIN SODIUM
     Indication: Cardiac disorder
     Route: 064
     Dates: end: 20240104
  8. INNOHEP [Suspect]
     Active Substance: TINZAPARIN SODIUM
     Indication: Cardiac disorder
     Route: 064
     Dates: start: 20240122, end: 20240724
  9. LOVENOX [Suspect]
     Active Substance: ENOXAPARIN SODIUM
     Indication: Product used for unknown indication
     Route: 064
     Dates: start: 20240104, end: 20240122

REACTIONS (4)
  - Premature baby [Recovered/Resolved]
  - Low birth weight baby [Recovered/Resolved]
  - Foetal exposure during pregnancy [Recovered/Resolved]
  - Foetal exposure during pregnancy [Recovered/Resolved]

NARRATIVE: CASE EVENT DATE: 20240724
